FAERS Safety Report 21185672 (Version 2)
Quarter: 2022Q3

REPORT INFORMATION
  Report Type: Spontaneous
  Country: US (occurrence: US)
  Receive Date: 20220808
  Receipt Date: 20220923
  Transmission Date: 20221027
  Serious: No
  Sender: FDA-Public Use
  Company Number: US-SA-SAC20220801000637

PATIENT
  Age: 24 Year
  Sex: Female

DRUGS (1)
  1. DUPIXENT [Suspect]
     Active Substance: DUPILUMAB
     Indication: Dermatitis atopic
     Dosage: 300 MG, QOW
     Route: 058
     Dates: start: 20220729

REACTIONS (7)
  - Discomfort [Unknown]
  - Sleep disorder [Recovering/Resolving]
  - Eye pruritus [Unknown]
  - Rash [Unknown]
  - Oral herpes [Unknown]
  - Eye irritation [Unknown]
  - Dermatitis atopic [Unknown]
